FAERS Safety Report 13868433 (Version 2)
Quarter: 2017Q3

REPORT INFORMATION
  Report Type: Report from Study
  Country: US (occurrence: US)
  Receive Date: 20170815
  Receipt Date: 20170905
  Transmission Date: 20171127
  Serious: No
  Sender: FDA-Public Use
  Company Number: US-009507513-1707USA006107

PATIENT
  Age: 52 Year
  Sex: Female
  Weight: 88.44 kg

DRUGS (1)
  1. IMPLANON [Suspect]
     Active Substance: ETONOGESTREL
     Dosage: 1 ROD / THREE YEARS
     Route: 059
     Dates: start: 20170718

REACTIONS (4)
  - Product quality issue [Unknown]
  - Complication associated with device [Recovered/Resolved]
  - Device difficult to use [Recovered/Resolved]
  - No adverse event [Unknown]

NARRATIVE: CASE EVENT DATE: 20170718
